FAERS Safety Report 24715415 (Version 1)
Quarter: 2024Q4

REPORT INFORMATION
  Report Type: Spontaneous
  Country: JP (occurrence: JP)
  Receive Date: 20241210
  Receipt Date: 20241210
  Transmission Date: 20250114
  Serious: Yes (Other)
  Sender: SANOFI AVENTIS
  Company Number: JP-ASTELLAS-2024-AER-022313

PATIENT
  Age: 3 Decade
  Sex: Female

DRUGS (3)
  1. ZOLPIDEM TARTRATE [Suspect]
     Active Substance: ZOLPIDEM TARTRATE
     Indication: Insomnia
     Dosage: 10 MG, QD
     Route: 048
  2. ZOLPIDEM TARTRATE [Suspect]
     Active Substance: ZOLPIDEM TARTRATE
     Dosage: 5 MG
     Route: 048
  3. ZOLPIDEM TARTRATE [Suspect]
     Active Substance: ZOLPIDEM TARTRATE
     Dosage: 20 MG
     Route: 048

REACTIONS (9)
  - Autoimmune thyroiditis [Unknown]
  - Drug dependence [Unknown]
  - Insomnia [Unknown]
  - Dizziness [Unknown]
  - Fall [Unknown]
  - Memory impairment [Unknown]
  - Cognitive disorder [Unknown]
  - Somnolence [Unknown]
  - Intentional product misuse [Unknown]
